FAERS Safety Report 6140010-X (Version None)
Quarter: 2009Q1

REPORT INFORMATION
  Report Type: 
  Country: None (occurrence: None)
  Receive Date: 20090331
  Receipt Date: 20090331
  Transmission Date: 20090719
  Serious: No
  Sender: FDA-Public Use
  Company Number: None

PATIENT
  Age: 67 Year
  Weight: 79.3795 kg

DRUGS (2)
  1. WELLBUTRIN SR [Suspect]
     Indication: DEATH OF RELATIVE
     Dosage: 150 MG 2X DAILY 150 MG 2X DAILY
  2. WELLBUTRIN SR [Suspect]
     Indication: DEPRESSION
     Dosage: 150 MG 2X DAILY 150 MG 2X DAILY

REACTIONS (6)
  - ANXIETY [None]
  - DIZZINESS [None]
  - EMOTIONAL DISORDER [None]
  - PANIC ATTACK [None]
  - PARAESTHESIA [None]
  - WEIGHT DECREASED [None]
